FAERS Safety Report 11544078 (Version 3)
Quarter: 2015Q4

REPORT INFORMATION
  Report Type: Spontaneous
  Country: AR (occurrence: AR)
  Receive Date: 20150924
  Receipt Date: 20151230
  Transmission Date: 20160304
  Serious: Yes (Other)
  Sender: FDA-Public Use
  Company Number: AR-AMGEN-ARGSP2015098518

PATIENT
  Age: 58 Year
  Sex: Female

DRUGS (2)
  1. ENBREL [Suspect]
     Active Substance: ETANERCEPT
     Indication: RHEUMATOID ARTHRITIS
     Dosage: 50 MG, WEEKLY
     Route: 065
     Dates: start: 19950510
  2. ERVEMIN                            /00113801/ [Concomitant]
     Dosage: UNK

REACTIONS (2)
  - Malaise [Recovering/Resolving]
  - Abasia [Recovering/Resolving]

NARRATIVE: CASE EVENT DATE: 201511
